FAERS Safety Report 10779076 (Version 1)
Quarter: 2015Q1

REPORT INFORMATION
  Report Type: Spontaneous
  Country: US (occurrence: US)
  Receive Date: 20150210
  Receipt Date: 20150210
  Transmission Date: 20150721
  Serious: Yes (Hospitalization)
  Sender: FDA-Public Use
  Company Number: US-JNJFOC-20150119986

PATIENT
  Sex: Male
  Weight: 83.1 kg

DRUGS (2)
  1. PREDNISONE. [Suspect]
     Active Substance: PREDNISONE
     Indication: PROSTATE CANCER
     Route: 048
  2. ABIRATERONE ACETATE [Suspect]
     Active Substance: ABIRATERONE ACETATE
     Indication: PROSTATE CANCER
     Dosage: TOTAL DOSE ADMINISTERED 4000 MG
     Route: 048
     Dates: start: 20140326

REACTIONS (2)
  - Rectal obstruction [Unknown]
  - Constipation [Unknown]

NARRATIVE: CASE EVENT DATE: 20141108
